FAERS Safety Report 24715211 (Version 1)
Quarter: 2024Q4

REPORT INFORMATION
  Report Type: Spontaneous
  Country: PT (occurrence: PT)
  Receive Date: 20241210
  Receipt Date: 20241210
  Transmission Date: 20250114
  Serious: Yes (Hospitalization)
  Sender: SANOFI AVENTIS
  Company Number: None

PATIENT
  Age: 77 Year
  Sex: Female

DRUGS (1)
  1. DOCETAXEL [Suspect]
     Active Substance: DOCETAXEL
     Dosage: UNK, Q3W
     Route: 042
     Dates: start: 20241010

REACTIONS (2)
  - Malaise [Recovered/Resolved]
  - Erythema [Recovered/Resolved]

NARRATIVE: CASE EVENT DATE: 20241010
